FAERS Safety Report 16268792 (Version 1)
Quarter: 2019Q2

REPORT INFORMATION
  Report Type: Spontaneous
  Country: US (occurrence: US)
  Receive Date: 20190503
  Receipt Date: 20190503
  Transmission Date: 20190711
  Serious: Yes (Life-Threatening, Hospitalization, Other)
  Sender: FDA-Public Use
  Company Number: US-ELI_LILLY_AND_COMPANY-US201905000009

PATIENT
  Sex: Male

DRUGS (12)
  1. FUROSEMIDE. [Concomitant]
     Active Substance: FUROSEMIDE
     Dosage: 40 MG, DAILY
     Route: 065
  2. ASPIRINE [Concomitant]
     Active Substance: ASPIRIN
     Dosage: 81 MG, DAILY
     Route: 065
  3. HUMALOG [Suspect]
     Active Substance: INSULIN LISPRO
     Indication: TYPE 2 DIABETES MELLITUS
     Dosage: 35 U, TID (PLUS SLIDING SCALE)
     Route: 058
  4. BASAGLAR [Suspect]
     Active Substance: INSULIN GLARGINE
     Indication: TYPE 2 DIABETES MELLITUS
     Dosage: 104 U, BID
     Route: 058
  5. AMLODIPINE [Concomitant]
     Active Substance: AMLODIPINE BESYLATE
     Dosage: 4 MG, DAILY
     Route: 065
  6. HUMALOG [Suspect]
     Active Substance: INSULIN LISPRO
     Indication: TYPE 2 DIABETES MELLITUS
     Dosage: 35 U, TID (SLIDING SCALE)
     Route: 058
  7. TRESIBA [Concomitant]
     Active Substance: INSULIN DEGLUDEC
     Indication: TYPE 2 DIABETES MELLITUS
     Dosage: 104 U, BID
     Route: 065
  8. LORATADINE. [Concomitant]
     Active Substance: LORATADINE
     Dosage: 10 MG, DAILY
     Route: 065
  9. LISINOPRIL. [Concomitant]
     Active Substance: LISINOPRIL
     Dosage: 20 MG, BID
     Route: 065
  10. METOPROLOL. [Concomitant]
     Active Substance: METOPROLOL
     Dosage: 100 MG, BID
     Route: 065
  11. NOVOLIN R [Concomitant]
     Active Substance: INSULIN HUMAN
     Indication: TYPE 2 DIABETES MELLITUS
     Dosage: 35 U, TID (PLUS SLIDING SCALE)
     Route: 065
  12. ATORVASTATIN [Concomitant]
     Active Substance: ATORVASTATIN
     Dosage: 80 MG, DAILY
     Route: 065

REACTIONS (8)
  - Impaired healing [Recovered/Resolved]
  - Myocardial infarction [Recovered/Resolved]
  - Chest injury [Recovered/Resolved]
  - Hyperkeratosis [Recovered/Resolved]
  - Cataract [Recovered/Resolved]
  - Nail discolouration [Recovered/Resolved]
  - Hypoacusis [Not Recovered/Not Resolved]
  - Atrioventricular block [Unknown]
